FAERS Safety Report 13459595 (Version 2)
Quarter: 2017Q2

REPORT INFORMATION
  Report Type: Report from Study
  Country: US (occurrence: US)
  Receive Date: 20170419
  Receipt Date: 20170426
  Transmission Date: 20170830
  Serious: Yes (Other)
  Sender: FDA-Public Use
  Company Number: US-BIOGEN-2017BI00389030

PATIENT
  Age: 53 Year
  Sex: Female

DRUGS (1)
  1. TYSABRI [Suspect]
     Active Substance: NATALIZUMAB
     Indication: MULTIPLE SCLEROSIS
     Dosage: INFUSED OVER 1 HOUR
     Route: 042
     Dates: start: 20150817

REACTIONS (14)
  - Hemiparesis [Not Recovered/Not Resolved]
  - Neck pain [Not Recovered/Not Resolved]
  - Fall [Recovered/Resolved]
  - Back injury [Unknown]
  - Musculoskeletal pain [Not Recovered/Not Resolved]
  - Concussion [Not Recovered/Not Resolved]
  - Myalgia [Not Recovered/Not Resolved]
  - Spinal column injury [Not Recovered/Not Resolved]
  - Limb injury [Unknown]
  - Back pain [Not Recovered/Not Resolved]
  - Neck injury [Unknown]
  - General symptom [Not Recovered/Not Resolved]
  - Arthralgia [Not Recovered/Not Resolved]
  - Fatigue [Not Recovered/Not Resolved]

NARRATIVE: CASE EVENT DATE: 20170101
